FAERS Safety Report 10912991 (Version 2)
Quarter: 2015Q1

REPORT INFORMATION
  Report Type: Other
  Country: US (occurrence: US)
  Receive Date: 20150313
  Receipt Date: 20150327
  Transmission Date: 20150721
  Serious: Yes (Death, Disabling, Other)
  Sender: FDA-Public Use
  Company Number: US-UNITED THERAPEUTICS-UNT-2015-002629

PATIENT
  Age: 65 Year
  Sex: Female
  Weight: 87.75 kg

DRUGS (1)
  1. REMODULIN [Suspect]
     Active Substance: TREPROSTINIL
     Indication: PULMONARY ARTERIAL HYPERTENSION
     Dosage: 0.094 ?G/KG, CONTINUING
     Route: 058
     Dates: start: 20141001, end: 20150303

REACTIONS (3)
  - Activities of daily living impaired [Unknown]
  - Respiratory failure [Fatal]
  - Mental status changes [Unknown]

NARRATIVE: CASE EVENT DATE: 20150302
